FAERS Safety Report 5525520-8 (Version None)
Quarter: 2007Q4

REPORT INFORMATION
  Report Type: 
  Country: None (occurrence: None)
  Receive Date: 20071126
  Receipt Date: 20071119
  Transmission Date: 20080405
  Serious: Yes (Hospitalization)
  Sender: FDA-Public Use
  Company Number: A0695174A

PATIENT
  Age: 85 Year
  Sex: Male

DRUGS (10)
  1. VENTOLIN [Suspect]
     Dosage: 108MCG FOUR TIMES PER DAY
     Route: 055
     Dates: start: 20071103
  2. ALLOPURINOL [Concomitant]
  3. NADOLOL [Concomitant]
  4. ASPIRIN [Concomitant]
  5. HYDROCHLOROTHIAZIDE [Concomitant]
  6. RELAFEN [Concomitant]
  7. AMLODIPINE [Concomitant]
  8. LIPITOR [Concomitant]
  9. QUININE [Concomitant]
  10. OCUVITE [Concomitant]

REACTIONS (3)
  - CHEST PAIN [None]
  - DYSPNOEA [None]
  - RESPIRATORY FAILURE [None]
